FAERS Safety Report 9423664 (Version 1)
Quarter: 2013Q3

REPORT INFORMATION
  Report Type: Spontaneous
  Country: GB (occurrence: GB)
  Receive Date: 20130726
  Receipt Date: 20130726
  Transmission Date: 20140515
  Serious: Yes (Other)
  Sender: FDA-Public Use
  Company Number: GB-JNJFOC-20130709745

PATIENT
  Age: 31 Year
  Sex: Female

DRUGS (2)
  1. REGAINE FOR WOMEN TOPICAL SOLUTION 2% [Suspect]
     Route: 061
  2. REGAINE FOR WOMEN TOPICAL SOLUTION 2% [Suspect]
     Indication: ALOPECIA
     Route: 061

REACTIONS (3)
  - Depression [Recovering/Resolving]
  - Intentional drug misuse [Unknown]
  - Hair growth abnormal [Unknown]
